FAERS Safety Report 14610019 (Version 8)
Quarter: 2019Q3

REPORT INFORMATION
  Report Type: Spontaneous
  Country: US (occurrence: US)
  Receive Date: 20180307
  Receipt Date: 20190821
  Transmission Date: 20191004
  Serious: Yes (Hospitalization)
  Sender: FDA-Public Use
  Company Number: US-ACTELION-A-NJ2017-163766

PATIENT
  Age: 51 Year
  Sex: Female

DRUGS (11)
  1. VELETRI [Suspect]
     Active Substance: EPOPROSTENOL
     Dosage: 40 NG/KG, PER MIN
     Route: 042
     Dates: start: 20171110
  2. OXYGEN. [Concomitant]
     Active Substance: OXYGEN
     Dosage: 5 L, UNK
     Route: 055
  3. VELETRI [Suspect]
     Active Substance: EPOPROSTENOL
     Dosage: 51 NG/KG, PER MIN
     Route: 042
     Dates: end: 20190813
  4. ADCIRCA [Suspect]
     Active Substance: TADALAFIL
     Indication: PULMONARY ARTERIAL HYPERTENSION
     Dosage: 20 MG, BID
     Route: 065
     Dates: start: 20170220
  5. ADCIRCA [Suspect]
     Active Substance: TADALAFIL
     Dosage: 40 MG, QD
     Route: 065
     Dates: start: 201702
  6. VELETRI [Suspect]
     Active Substance: EPOPROSTENOL
     Indication: PULMONARY ARTERIAL HYPERTENSION
     Dosage: 25 NG/KG, PER MIN
     Route: 042
     Dates: start: 20171110
  7. REMODULIN [Suspect]
     Active Substance: TREPROSTINIL
     Indication: PRODUCT USED FOR UNKNOWN INDICATION
     Dosage: 5 MG, UNK
     Route: 065
  8. LETAIRIS [Suspect]
     Active Substance: AMBRISENTAN
     Indication: PULMONARY ARTERIAL HYPERTENSION
     Dosage: 10 MG, QD
     Route: 065
     Dates: start: 20170124
  9. LASIX [Concomitant]
     Active Substance: FUROSEMIDE
  10. SILDENAFIL. [Suspect]
     Active Substance: SILDENAFIL
     Indication: PULMONARY HYPERTENSION
     Dosage: 80 MG, TID
     Route: 065
     Dates: start: 20180501
  11. OXYGEN. [Concomitant]
     Active Substance: OXYGEN
     Dosage: 4 L, UNK

REACTIONS (19)
  - Weight increased [Unknown]
  - Fluid retention [Recovered/Resolved]
  - Pain in jaw [Not Recovered/Not Resolved]
  - Fatigue [Unknown]
  - Device dislocation [Recovered/Resolved]
  - Erythema [Unknown]
  - Lung transplant [Unknown]
  - Nausea [Not Recovered/Not Resolved]
  - Weight decreased [Not Recovered/Not Resolved]
  - Oedema [Unknown]
  - Oxygen consumption increased [Not Recovered/Not Resolved]
  - Diarrhoea [Unknown]
  - Dizziness [Unknown]
  - Flushing [Unknown]
  - Chest pain [Unknown]
  - Syncope [Unknown]
  - Peripheral swelling [Unknown]
  - Dyspnoea exertional [Not Recovered/Not Resolved]
  - Weight fluctuation [Unknown]

NARRATIVE: CASE EVENT DATE: 201802
